FAERS Safety Report 6497934-3 (Version None)
Quarter: 2009Q4

REPORT INFORMATION
  Report Type: 
  Country: None (occurrence: None)
  Receive Date: 20091215
  Receipt Date: 20091125
  Transmission Date: 20100525
  Serious: Yes (Other)
  Sender: FDA-Public Use
  Company Number: GB-ROCHE-452099

PATIENT
  Sex: Female
  Weight: 67.5 kg

DRUGS (9)
  1. HERCEPTIN [Suspect]
     Route: 042
     Dates: start: 20060413, end: 20060510
  2. HERCEPTIN [Suspect]
     Route: 042
     Dates: end: 20060525
  3. HERCEPTIN [Suspect]
     Route: 042
     Dates: start: 20060801
  4. HERCEPTIN [Suspect]
     Route: 042
     Dates: end: 20070510
  5. CISPLATIN / EPIRUBICIN / 5-FU [Concomitant]
     Route: 042
     Dates: start: 20051208, end: 20060323
  6. ZOLEDRONIC ACID [Concomitant]
     Indication: UNEVALUABLE EVENT
     Route: 042
     Dates: start: 20051208, end: 20060525
  7. TAMOXIFEN CITRATE [Concomitant]
     Indication: THERAPEUTIC PROCEDURE
     Route: 048
     Dates: start: 20060413
  8. FLUOROURACIL [Concomitant]
     Route: 042
     Dates: start: 20051208, end: 20060323
  9. EPIRUBICIN [Concomitant]
     Route: 042
     Dates: start: 20051208, end: 20060323

REACTIONS (2)
  - HYPOTHYROIDISM [None]
  - MYOSITIS [None]
